FAERS Safety Report 7633989-8 (Version None)
Quarter: 2011Q3

REPORT INFORMATION
  Report Type: 
  Country: None (occurrence: None)
  Receive Date: 20110725
  Receipt Date: 20090206
  Transmission Date: 20111222
  Serious: Yes (Other)
  Sender: FDA-Public Use
  Company Number: DE-GENENTECH-321707

PATIENT
  Age: 80 Year
  Sex: Female

DRUGS (5)
  1. LUCENTIS [Suspect]
     Route: 031
  2. LUCENTIS [Suspect]
     Dosage: UNK
     Route: 031
     Dates: start: 20080101
  3. LUCENTIS [Suspect]
     Route: 031
  4. LUCENTIS [Suspect]
     Route: 031
  5. LUCENTIS [Suspect]
     Indication: AGE-RELATED MACULAR DEGENERATION
     Dosage: UNK
     Route: 031
     Dates: start: 20070101

REACTIONS (4)
  - GASTROENTERITIS VIRAL [None]
  - VISUAL ACUITY REDUCED [None]
  - MACULOPATHY [None]
  - CATARACT [None]
